FAERS Safety Report 8624486-1 (Version None)
Quarter: 2012Q3

REPORT INFORMATION
  Report Type: 
  Country: None (occurrence: None)
  Receive Date: 20120827
  Receipt Date: 20120822
  Transmission Date: 20120928
  Serious: Yes (Hospitalization)
  Sender: FDA-Public Use
  Company Number: US-CELGENEUS-163-21880-12081233

PATIENT
  Sex: Female

DRUGS (2)
  1. REVLIMID [Suspect]
     Indication: MULTIPLE MYELOMA
     Dosage: 10 MILLIGRAM
     Route: 048
     Dates: start: 20120706, end: 20120807
  2. BLOOD TRANSFUSIONS [Concomitant]
     Route: 065

REACTIONS (5)
  - APHAGIA [None]
  - BALANCE DISORDER [None]
  - ASTHENIA [None]
  - NAUSEA [None]
  - HAEMORRHAGE [None]
